FAERS Safety Report 14483053 (Version 1)
Quarter: 2018Q1

REPORT INFORMATION
  Report Type: Spontaneous
  Country: US (occurrence: US)
  Receive Date: 20180203
  Receipt Date: 20180203
  Transmission Date: 20180509
  Serious: Yes (Hospitalization, Other)
  Sender: FDA-Public Use
  Company Number: US-BRISTOL-MYERS SQUIBB COMPANY-BMS-2018-008634

PATIENT
  Sex: Female
  Weight: 77.98 kg

DRUGS (2)
  1. OPDIVO [Suspect]
     Active Substance: NIVOLUMAB
     Indication: MALIGNANT MELANOMA
     Route: 042
     Dates: start: 20170708, end: 20171213
  2. YERVOY [Suspect]
     Active Substance: IPILIMUMAB
     Indication: MALIGNANT MELANOMA
     Dosage: UNK
     Route: 042
     Dates: start: 20170708, end: 20171213

REACTIONS (10)
  - Incontinence [Unknown]
  - Colitis [Unknown]
  - Thyroid disorder [Unknown]
  - Pollakiuria [Unknown]
  - Malignant neoplasm progression [Unknown]
  - Pneumonia [Unknown]
  - Hepatic lesion [Unknown]
  - Loss of consciousness [Unknown]
  - Hypothalamo-pituitary disorder [Unknown]
  - Adrenomegaly [Unknown]
